FAERS Safety Report 15685795 (Version 2)
Quarter: 2019Q1

REPORT INFORMATION
  Report Type: Spontaneous
  Country: US (occurrence: US)
  Receive Date: 20181204
  Receipt Date: 20190102
  Transmission Date: 20190417
  Serious: Yes (Hospitalization)
  Sender: FDA-Public Use
  Company Number: US-SAKK-2018SA322553AA

PATIENT
  Age: 80 Year
  Sex: Male

DRUGS (1)
  1. LANTUS [Suspect]
     Active Substance: INSULIN GLARGINE
     Indication: TYPE 2 DIABETES MELLITUS
     Dosage: 32 U, HS

REACTIONS (4)
  - Blood pressure increased [Unknown]
  - Blood glucose increased [Unknown]
  - Device operational issue [Unknown]
  - Cardiac disorder [Recovered/Resolved]
